FAERS Safety Report 7109003-X (Version None)
Quarter: 2010Q4

REPORT INFORMATION
  Report Type: 
  Country: None (occurrence: None)
  Receive Date: 20101117
  Receipt Date: 20101111
  Transmission Date: 20110411
  Serious: Yes (Life-Threatening)
  Sender: FDA-Public Use
  Company Number: HU-TEVA-255392ISR

PATIENT
  Sex: Male

DRUGS (5)
  1. PREDNISOLONE [Suspect]
     Indication: PROSTATE CANCER METASTATIC
     Route: 048
  2. ABIRATERONE ACETATE [Suspect]
     Indication: PROSTATE CANCER METASTATIC
     Route: 048
     Dates: start: 20081016
  3. GOSERELIN ACETATE [Concomitant]
     Indication: PROSTATE CANCER METASTATIC
     Route: 030
     Dates: start: 20060106
  4. AMLODIPINE [Concomitant]
     Indication: HYPERTONIA
     Route: 048
     Dates: start: 20080703
  5. METAMIZOLE [Concomitant]
     Indication: CANCER PAIN
     Route: 048
     Dates: start: 20080810

REACTIONS (1)
  - HYPOPHOSPHATAEMIA [None]
